FAERS Safety Report 6292642-6 (Version None)
Quarter: 2009Q3

REPORT INFORMATION
  Report Type: 
  Country: None (occurrence: None)
  Receive Date: 20090731
  Receipt Date: 20090722
  Transmission Date: 20100115
  Serious: Yes (Other)
  Sender: FDA-Public Use
  Company Number: GT-BAYER-200919280LA

PATIENT
  Age: 92 Year
  Sex: Male
  Weight: 82 kg

DRUGS (4)
  1. XARELTO [Interacting]
     Indication: THROMBOSIS PROPHYLAXIS
     Dosage: TOTAL DAILY DOSE: 10 MG  UNIT DOSE: 10 MG
     Route: 048
     Dates: start: 20090604, end: 20090605
  2. XARELTO [Interacting]
     Dosage: TOTAL DAILY DOSE: 5 MG  UNIT DOSE: 10 MG
     Route: 048
     Dates: start: 20090609, end: 20090610
  3. XARELTO [Interacting]
     Dosage: TOTAL DAILY DOSE: 10 MG  UNIT DOSE: 10 MG
     Route: 048
     Dates: start: 20090611
  4. KETOPROFEN [Suspect]
     Indication: DRUG USE FOR UNKNOWN INDICATION
     Route: 042
     Dates: start: 20090603, end: 20090609

REACTIONS (1)
  - HAEMATURIA [None]
